FAERS Safety Report 16007272 (Version 2)
Quarter: 2019Q1

REPORT INFORMATION
  Report Type: Spontaneous
  Country: PT (occurrence: PT)
  Receive Date: 20190226
  Receipt Date: 20190228
  Transmission Date: 20190418
  Serious: Yes (Life-Threatening)
  Sender: FDA-Public Use
  Company Number: PT-ELI_LILLY_AND_COMPANY-PT201902011691

PATIENT
  Age: 61 Year
  Sex: Male

DRUGS (2)
  1. FOLIC ACID. [Concomitant]
     Active Substance: FOLIC ACID
     Indication: PREMEDICATION
     Dosage: UNK, UNKNOWN
     Route: 065
  2. ALIMTA [Suspect]
     Active Substance: PEMETREXED DISODIUM
     Indication: PRODUCT USED FOR UNKNOWN INDICATION
     Dosage: UNK, OTHER (MAINTENANCE THERAPY)
     Route: 065

REACTIONS (2)
  - Pancytopenia [Unknown]
  - Off label use [Unknown]
